FAERS Safety Report 4277750-3 (Version None)
Quarter: 2004Q1

REPORT INFORMATION
  Report Type: 
  Country: None (occurrence: None)
  Receive Date: 20040121
  Receipt Date: 20040108
  Transmission Date: 20041129
  Serious: Yes (Other)
  Sender: FDA-Public Use
  Company Number: 2004001966

PATIENT
  Age: 51 Year
  Sex: Male

DRUGS (3)
  1. ATORVASTATIN (ATORVASTATIN) [Suspect]
     Indication: ILL-DEFINED DISORDER
     Dosage: 20 MG (DAILY), ORAL
     Route: 048
     Dates: start: 20030901, end: 20031101
  2. HYDROCHLOROTHIAZIDE [Concomitant]
  3. FOSINOPRIL SODIUM [Concomitant]

REACTIONS (1)
  - SILENT MYOCARDIAL INFARCTION [None]
